FAERS Safety Report 6601931-4 (Version None)
Quarter: 2010Q1

REPORT INFORMATION
  Report Type: 
  Country: None (occurrence: None)
  Receive Date: 20100218
  Receipt Date: 20100205
  Transmission Date: 20100710
  Serious: Yes (Other)
  Sender: FDA-Public Use
  Company Number: 006362

PATIENT
  Age: 76 Year
  Sex: Female

DRUGS (2)
  1. KEPPRA [Suspect]
     Indication: CONVULSION
     Dosage: (500 MG BID)
  2. UNKNOWN (SEVERAL OTHER UNSPECIFIED DRUGS) [Suspect]

REACTIONS (1)
  - COMA [None]
